FAERS Safety Report 21631189 (Version 1)
Quarter: 2022Q4

REPORT INFORMATION
  Report Type: Spontaneous
  Country: US (occurrence: US)
  Receive Date: 20221123
  Receipt Date: 20221123
  Transmission Date: 20230113
  Serious: Yes (Other)
  Sender: FDA-Public Use
  Company Number: US-OYSTER POINT PHARMA, INC-US-OYS-22-001209

PATIENT
  Sex: Female

DRUGS (1)
  1. TYRVAYA [Suspect]
     Active Substance: VARENICLINE TARTRATE
     Indication: Dry eye
     Dosage: UNK, BID
     Route: 045
     Dates: start: 20221103, end: 20221104

REACTIONS (4)
  - Swollen tongue [Unknown]
  - Glossodynia [Unknown]
  - Dyspnoea [Unknown]
  - Speech disorder [Unknown]

NARRATIVE: CASE EVENT DATE: 20221104
